FAERS Safety Report 10056700 (Version 2)
Quarter: 2014Q2

REPORT INFORMATION
  Report Type: Report from Study
  Country: US (occurrence: US)
  Receive Date: 20140403
  Receipt Date: 20140516
  Transmission Date: 20141212
  Serious: Yes (Hospitalization, Disabling)
  Sender: FDA-Public Use
  Company Number: PHEH2014US006516

PATIENT
  Age: 61 Year
  Sex: Female
  Weight: 43.99 kg

DRUGS (11)
  1. GILENYA [Suspect]
     Indication: SECONDARY PROGRESSIVE MULTIPLE SCLEROSIS
     Dosage: 0.5 MG, QD
     Route: 048
     Dates: start: 20140227
  2. GILENYA [Suspect]
     Indication: OFF LABEL USE
  3. DETROL [Concomitant]
     Dosage: 1 MG, UNK
  4. RECLAST [Concomitant]
  5. CITALOPRAM [Concomitant]
     Dosage: 10 MG, UNK
  6. AMPYRA [Concomitant]
     Dosage: 10 MG, UNK
  7. FISH OIL [Concomitant]
  8. VITAMIN D [Concomitant]
     Dosage: 1000 U, UNK
  9. MULTIVITAMIN                       /00097801/ [Concomitant]
  10. VITAMIN B12 [Concomitant]
     Dosage: 1 MG, UNK
  11. VITAMIN K2 [Concomitant]
     Dosage: 100 UG, UNK

REACTIONS (2)
  - Hip fracture [Not Recovered/Not Resolved]
  - Fall [Not Recovered/Not Resolved]
